FAERS Safety Report 7879518-5 (Version None)
Quarter: 2011Q4

REPORT INFORMATION
  Report Type: 
  Country: None (occurrence: None)
  Receive Date: 20111101
  Receipt Date: 20111028
  Transmission Date: 20120403
  Serious: Yes (Hospitalization)
  Sender: FDA-Public Use
  Company Number: CA-GLAXOSMITHKLINE-A0576480A

PATIENT
  Age: 47 Year
  Sex: Male

DRUGS (1)
  1. PAXIL [Suspect]
     Indication: MAJOR DEPRESSION
     Dosage: 60MG PER DAY
     Route: 048
     Dates: start: 20030701, end: 20040101

REACTIONS (17)
  - DELUSION [None]
  - INSOMNIA [None]
  - WEIGHT INCREASED [None]
  - OBSESSIVE THOUGHTS [None]
  - PERSONALITY CHANGE [None]
  - SEXUAL DYSFUNCTION [None]
  - PSYCHOTIC DISORDER [None]
  - AGITATION [None]
  - MAJOR DEPRESSION [None]
  - HOMICIDE [None]
  - DEPRESSION [None]
  - SUICIDAL IDEATION [None]
  - MENTAL DISORDER [None]
  - DRUG INEFFECTIVE [None]
  - AKATHISIA [None]
  - MANIA [None]
  - HYPERHIDROSIS [None]
